FAERS Safety Report 10478716 (Version 2)
Quarter: 2014Q4

REPORT INFORMATION
  Report Type: Report from Study
  Country: KR (occurrence: KR)
  Receive Date: 20140926
  Receipt Date: 20141015
  Transmission Date: 20150528
  Serious: Yes (Hospitalization, Other)
  Sender: FDA-Public Use
  Company Number: KR-BRISTOL-MYERS SQUIBB COMPANY-21400239

PATIENT
  Age: 52 Year
  Sex: Male

DRUGS (1)
  1. DASATINIB [Suspect]
     Active Substance: DASATINIB
     Indication: CHRONIC MYELOID LEUKAEMIA
     Dosage: INT: 12-SEP-2014?RESTARTED:24SEP14:80 MG-ONGOING
     Route: 048
     Dates: start: 20140905, end: 20140911

REACTIONS (7)
  - Oedema peripheral [Not Recovered/Not Resolved]
  - Pleural effusion [Recovered/Resolved]
  - Abdominal discomfort [Recovering/Resolving]
  - Thrombocytopenia [Unknown]
  - Face oedema [Recovering/Resolving]
  - Hepatosplenomegaly [Unknown]
  - Urine output decreased [Not Recovered/Not Resolved]

NARRATIVE: CASE EVENT DATE: 20140911
